FAERS Safety Report 20116222 (Version 1)
Quarter: 2021Q4

REPORT INFORMATION
  Report Type: Report from Study
  Country: FR (occurrence: FR)
  Receive Date: 20211126
  Receipt Date: 20211126
  Transmission Date: 20220303
  Serious: Yes (Other)
  Sender: FDA-Public Use
  Company Number: FR-ABBVIE-21K-056-4175963-00

PATIENT
  Age: 81 Year
  Sex: Male

DRUGS (2)
  1. CARBIDOPA\LEVODOPA [Suspect]
     Active Substance: CARBIDOPA\LEVODOPA
     Indication: Parkinson^s disease
     Route: 050
     Dates: start: 201811, end: 20211123
  2. CARBIDOPA\LEVODOPA [Suspect]
     Active Substance: CARBIDOPA\LEVODOPA

REACTIONS (1)
  - Terminal state [Not Recovered/Not Resolved]
